FAERS Safety Report 6322757-5 (Version None)
Quarter: 2009Q3

REPORT INFORMATION
  Report Type: 
  Country: None (occurrence: None)
  Receive Date: 20090821
  Receipt Date: 20090821
  Transmission Date: 20100115
  Serious: Yes (Hospitalization)
  Sender: FDA-Public Use
  Company Number: None

PATIENT
  Sex: Female
  Weight: 100.7 kg

DRUGS (1)
  1. ROCURONIUM BROMIDE [Suspect]
     Indication: MUSCLE RELAXANT THERAPY
     Dosage: 40 MG ONCE IV
     Route: 042
     Dates: start: 20090820, end: 20090820

REACTIONS (1)
  - DRUG EFFECT DECREASED [None]
